FAERS Safety Report 10143712 (Version 1)
Quarter: 2014Q2

REPORT INFORMATION
  Report Type: Spontaneous
  Country: US (occurrence: US)
  Receive Date: 20140430
  Receipt Date: 20140430
  Transmission Date: 20141212
  Serious: No
  Sender: FDA-Public Use
  Company Number: US-PFIZER INC-2014116542

PATIENT
  Age: 64 Year
  Sex: Female
  Weight: 86.2 kg

DRUGS (3)
  1. MORPHINE SULFATE [Suspect]
     Dosage: UNK
     Dates: end: 201404
  2. CYMBALTA [Concomitant]
     Dosage: UNK
     Dates: start: 2014
  3. VICODIN [Concomitant]
     Dosage: UNK
     Dates: start: 2014

REACTIONS (1)
  - Drug ineffective [Unknown]
